FAERS Safety Report 11305917 (Version 1)
Quarter: 2015Q3

REPORT INFORMATION
  Report Type: Spontaneous
  Country: US (occurrence: US)
  Receive Date: 20150723
  Receipt Date: 20150723
  Transmission Date: 20151125
  Serious: Yes (Other)
  Sender: FDA-Public Use
  Company Number: US-SA-2015SA106825

PATIENT
  Sex: Female

DRUGS (2)
  1. ACT BRACES CARE ANTICAVITY [Suspect]
     Active Substance: SODIUM FLUORIDE
     Dosage: ONCE OR TWICE A DAY
     Route: 065
     Dates: start: 201502
  2. ACT BRACES CARE ANTICAVITY [Suspect]
     Active Substance: SODIUM FLUORIDE
     Route: 065
     Dates: start: 201507

REACTIONS (8)
  - Glossodynia [Not Recovered/Not Resolved]
  - Lymphadenopathy [Not Recovered/Not Resolved]
  - Product quality issue [None]
  - Pigmentation disorder [Not Recovered/Not Resolved]
  - Chemical injury [Not Recovered/Not Resolved]
  - Dyspnoea [None]
  - Oral mucosal exfoliation [Not Recovered/Not Resolved]
  - Swelling [Not Recovered/Not Resolved]
